FAERS Safety Report 5007785-4 (Version None)
Quarter: 2006Q2

REPORT INFORMATION
  Report Type: 
  Country: None (occurrence: None)
  Receive Date: 20060522
  Receipt Date: 20060424
  Transmission Date: 20061013
  Serious: Yes (Hospitalization)
  Sender: FDA-Public Use
  Company Number: JP-JPN-A200601345

PATIENT
  Age: 73 Year
  Sex: Female
  Weight: 58 kg

DRUGS (16)
  1. VALTREX [Suspect]
     Indication: HERPES ZOSTER
     Dosage: 1000MG THREE TIMES PER DAY
     Route: 048
     Dates: start: 20060423, end: 20060423
  2. LANDEL [Concomitant]
     Indication: HYPERTENSION
     Dosage: 20MG TWICE PER DAY
     Route: 048
     Dates: start: 19990428
  3. NU-LOTAN [Concomitant]
     Indication: HYPERTENSION
     Dosage: 50MG TWICE PER DAY
     Route: 048
     Dates: start: 20000412
  4. LASIX [Concomitant]
     Indication: HYPERTENSION
     Dosage: 20MG TWICE PER DAY
     Route: 048
     Dates: start: 20030124
  5. JUVELA N [Concomitant]
     Indication: NEUROPATHY PERIPHERAL
     Dosage: 200MG THREE TIMES PER DAY
     Route: 048
     Dates: start: 19840705
  6. NITOROL R [Concomitant]
     Indication: ANGINA PECTORIS
     Route: 048
     Dates: start: 19991006
  7. FERROMIA [Concomitant]
     Dosage: 50MG PER DAY
     Route: 048
     Dates: start: 19970929
  8. THYRADIN S [Concomitant]
     Indication: HYPOTHYROIDISM
     Dosage: 25MG PER DAY
     Route: 048
     Dates: start: 20041110
  9. LOXONIN [Concomitant]
     Indication: PHARYNGOLARYNGEAL PAIN
     Dosage: 60MG TWICE PER DAY
     Route: 048
     Dates: start: 20050922
  10. CARDENALIN [Concomitant]
     Indication: HYPERTENSION
     Route: 048
     Dates: start: 20060322
  11. NOVORAPID [Concomitant]
     Indication: DIABETES MELLITUS
     Dosage: 12IU THREE TIMES PER DAY
     Route: 058
     Dates: start: 20020426
  12. INSULIN [Concomitant]
     Indication: DIABETES MELLITUS
     Dosage: 10IU PER DAY
     Route: 058
     Dates: start: 19941104
  13. ARASENA-A [Concomitant]
     Indication: HERPES ZOSTER
     Dosage: 300MG PER DAY
     Route: 042
     Dates: start: 20060420
  14. ISOTONIC SODIUM CHLORIDE SOLUTION [Concomitant]
     Dosage: 250ML PER DAY
     Route: 042
  15. CYANOCOBALAMIN [Concomitant]
     Indication: NEUROPATHY PERIPHERAL
     Dosage: 500MCG THREE TIMES PER DAY
     Route: 048
     Dates: start: 20060420, end: 20060423
  16. ANDERM [Concomitant]
     Route: 003
     Dates: start: 20060420, end: 20060423

REACTIONS (13)
  - CONVULSION [None]
  - DIZZINESS [None]
  - FEELING ABNORMAL [None]
  - GAZE PALSY [None]
  - HYPERACUSIS [None]
  - LOSS OF CONSCIOUSNESS [None]
  - MUSCULAR WEAKNESS [None]
  - NAUSEA [None]
  - NERVE INJURY [None]
  - OVERDOSE [None]
  - SOMNOLENCE [None]
  - SPEECH DISORDER [None]
  - VOMITING [None]
